FAERS Safety Report 14333850 (Version 1)
Quarter: 2017Q4

REPORT INFORMATION
  Report Type: Spontaneous
  Country: DE (occurrence: DE)
  Receive Date: 20171228
  Receipt Date: 20171228
  Transmission Date: 20180321
  Serious: Yes (Hospitalization, Other)
  Sender: FDA-Public Use
  Company Number: DE-MYLANLABS-2017M1083029

PATIENT
  Age: 35 Year
  Sex: Female

DRUGS (8)
  1. DIAZEPAM. [Suspect]
     Active Substance: DIAZEPAM
     Indication: PRODUCT USED FOR UNKNOWN INDICATION
     Dosage: 30 MG
     Route: 065
  2. BUPROPION. [Suspect]
     Active Substance: BUPROPION
     Indication: PRODUCT USED FOR UNKNOWN INDICATION
     Dosage: 600 MG EACH TIME FOR A TOTAL OF 25 TIMES
     Route: 042
  3. PIRITRAMIDE [Suspect]
     Active Substance: PIRITRAMIDE
     Indication: PAIN
     Dosage: UNK
     Route: 065
  4. LEVOMETHADONE [Concomitant]
     Active Substance: LEVOMETHADONE
     Indication: DRUG DEPENDENCE
     Dosage: 8 ML /DAY
     Route: 065
  5. CLONIDINE. [Concomitant]
     Active Substance: CLONIDINE
     Indication: DRUG WITHDRAWAL MAINTENANCE THERAPY
     Dosage: UNK
     Route: 065
  6. LEVETIRACETAM. [Concomitant]
     Active Substance: LEVETIRACETAM
     Indication: DRUG WITHDRAWAL MAINTENANCE THERAPY
     Dosage: 2000 MG
     Route: 065
  7. OXAZEPAM. [Concomitant]
     Active Substance: OXAZEPAM
     Indication: DRUG WITHDRAWAL MAINTENANCE THERAPY
     Dosage: 100 MG/DAY
     Route: 065
  8. LEVOMETHADONE [Concomitant]
     Active Substance: LEVOMETHADONE
     Dosage: 14 ML/DAY
     Route: 065

REACTIONS (12)
  - Condition aggravated [Unknown]
  - Withdrawal syndrome [Unknown]
  - Akathisia [Unknown]
  - Osteomyelitis [Unknown]
  - Drug dependence [Unknown]
  - Injection site abscess [Recovered/Resolved]
  - Chills [Unknown]
  - Dyspnoea [Unknown]
  - Generalised tonic-clonic seizure [Recovered/Resolved]
  - Drug abuse [Unknown]
  - Tremor [Unknown]
  - Drug withdrawal convulsions [Recovered/Resolved]
